FAERS Safety Report 11708269 (Version 1)
Quarter: 2015Q4

REPORT INFORMATION
  Report Type: Spontaneous
  Country: US (occurrence: US)
  Receive Date: 20151107
  Receipt Date: 20151107
  Transmission Date: 20160304
  Serious: Yes (Hospitalization)
  Sender: FDA-Public Use
  Company Number: US-AUROBINDO-AUR-APL-2015-10029

PATIENT
  Age: 44 Year
  Sex: Male

DRUGS (2)
  1. VORICONAZOLE. [Interacting]
     Active Substance: VORICONAZOLE
     Indication: ASPERGILLUS INFECTION
     Dosage: 200 MG, TWO TIMES A DAY
     Route: 065
  2. SIMVASTATIN. [Suspect]
     Active Substance: SIMVASTATIN
     Indication: HYPERLIPIDAEMIA
     Dosage: 10 MG, DAILY
     Route: 065

REACTIONS (10)
  - Blood bilirubin increased [Recovered/Resolved]
  - Aspartate aminotransferase increased [Recovered/Resolved]
  - Blood alkaline phosphatase increased [Recovered/Resolved]
  - Malaise [Recovered/Resolved]
  - Bilirubin conjugated increased [Recovered/Resolved]
  - Nausea [Recovered/Resolved]
  - Jaundice [Recovered/Resolved]
  - Hepatitis cholestatic [Recovered/Resolved]
  - Drug interaction [Recovered/Resolved]
  - Alanine aminotransferase increased [Recovered/Resolved]
